FAERS Safety Report 5835126-9 (Version None)
Quarter: 2008Q3

REPORT INFORMATION
  Report Type: 
  Country: None (occurrence: None)
  Receive Date: 20080805
  Receipt Date: 20080805
  Transmission Date: 20090109
  Serious: Yes (Other)
  Sender: FDA-Public Use
  Company Number: None

PATIENT
  Age: 69 Year
  Sex: Female
  Weight: 68.0396 kg

DRUGS (1)
  1. BONIVA [Suspect]
     Indication: MUSCLE SPASMS
     Dosage: ONE PILL MONTHLY PO
     Route: 048
     Dates: start: 20080303, end: 20080303

REACTIONS (2)
  - MUSCLE SPASMS [None]
  - PAIN [None]
